FAERS Safety Report 4339696-1 (Version None)
Quarter: 2004Q1

REPORT INFORMATION
  Report Type: 
  Country: None (occurrence: None)
  Receive Date: 20040329
  Receipt Date: 20040203
  Transmission Date: 20041129
  Serious: No
  Sender: FDA-Public Use
  Company Number: 04P-163-0249360-00

PATIENT
  Age: 55 Year
  Sex: Female

DRUGS (11)
  1. HUMIRA [Suspect]
     Indication: RHEUMATOID ARTHRITIS
     Dosage: 40 MG, 1 IN 2 WK, SUBCUTANEOUS
     Route: 058
     Dates: start: 20040131
  2. METOPROLOL SUCCINATE [Concomitant]
  3. AMLODIPINE BESYLATE [Concomitant]
  4. VASERETIC [Concomitant]
  5. METHOTREXATE [Concomitant]
  6. FOLIC ACID [Concomitant]
  7. ESOMEPRAZOLE [Concomitant]
  8. HYDRALAZINE HCL [Concomitant]
  9. POTASSIUM [Concomitant]
  10. CELECOXIB [Concomitant]
  11. SULFASALAZINE [Concomitant]

REACTIONS (2)
  - RASH PRURITIC [None]
  - TENDERNESS [None]
